FAERS Safety Report 25167126 (Version 1)
Quarter: 2025Q2

REPORT INFORMATION
  Report Type: Spontaneous
  Country: US (occurrence: None)
  Receive Date: 20250404
  Receipt Date: 20250404
  Transmission Date: 20250717
  Serious: Yes (Other)
  Sender: FDA-CTU
  Company Number: None

PATIENT
  Age: 50 Year
  Sex: Female

DRUGS (1)
  1. NITROFURANTOIN [Suspect]
     Active Substance: NITROFURANTOIN
     Indication: Urinary tract infection
     Dosage: TWICE A DAY ORAL ?
     Route: 048
     Dates: start: 20250325, end: 20250329

REACTIONS (2)
  - Alopecia [None]
  - Headache [None]

NARRATIVE: CASE EVENT DATE: 20250402
